FAERS Safety Report 14761372 (Version 7)
Quarter: 2024Q4

REPORT INFORMATION
  Report Type: Report from Study
  Country: CO (occurrence: CO)
  Receive Date: 20180415
  Receipt Date: 20241220
  Transmission Date: 20250114
  Serious: Yes (Hospitalization)
  Sender: NOVARTIS
  Company Number: PHHY2018CO064948

PATIENT
  Sex: Female
  Weight: 65 kg

DRUGS (3)
  1. COSENTYX [Suspect]
     Active Substance: SECUKINUMAB
     Indication: Psoriasis
     Dosage: 300 MG, QMO
     Route: 058
     Dates: start: 20150201
  2. COSENTYX [Suspect]
     Active Substance: SECUKINUMAB
     Dosage: 300 MG, QMO
     Route: 058
     Dates: start: 20170612
  3. Moringa [Concomitant]
     Indication: Chronic gastritis
     Dosage: UNK
     Route: 065

REACTIONS (13)
  - Asthmatic crisis [Recovering/Resolving]
  - Discouragement [Recovered/Resolved]
  - Dyspnoea [Recovered/Resolved]
  - Cough [Recovered/Resolved]
  - Asthma [Recovering/Resolving]
  - Malaise [Unknown]
  - Thyroid disorder [Unknown]
  - Weight decreased [Unknown]
  - Hyperhidrosis [Unknown]
  - Sensitivity to weather change [Unknown]
  - Influenza [Unknown]
  - Pyrexia [Recovering/Resolving]
  - Product availability issue [Unknown]
